FAERS Safety Report 5118536-7 (Version None)
Quarter: 2006Q3

REPORT INFORMATION
  Report Type: 
  Country: None (occurrence: None)
  Receive Date: 20060928
  Receipt Date: 20060821
  Transmission Date: 20061208
  Serious: Yes (Hospitalization, Disabling)
  Sender: FDA-Public Use
  Company Number: 2006-05-1371

PATIENT
  Age: 68 Year
  Sex: Female
  Weight: 43 kg

DRUGS (6)
  1. PEG-INTRON [Suspect]
     Indication: HEPATITIS C
     Dosage: 50 MCG QW SC ; 30 MCG QW SC ; 40 MCG QW SC ; 30 MCG QW SC
     Route: 058
     Dates: start: 20060105, end: 20060105
  2. PEG-INTRON [Suspect]
     Indication: HEPATITIS C
     Dosage: 50 MCG QW SC ; 30 MCG QW SC ; 40 MCG QW SC ; 30 MCG QW SC
     Route: 058
     Dates: start: 20060112, end: 20060112
  3. PEG-INTRON [Suspect]
     Indication: HEPATITIS C
     Dosage: 50 MCG QW SC ; 30 MCG QW SC ; 40 MCG QW SC ; 30 MCG QW SC
     Route: 058
     Dates: start: 20060119, end: 20060119
  4. PEG-INTRON [Suspect]
     Indication: HEPATITIS C
     Dosage: 50 MCG QW SC ; 30 MCG QW SC ; 40 MCG QW SC ; 30 MCG QW SC
     Route: 058
     Dates: start: 20060126, end: 20060126
  5. REBETOL [Suspect]
     Indication: HEPATITIS C
     Dosage: 400 MG PO ; 200 MG PO
     Route: 048
     Dates: start: 20060105, end: 20060208
  6. REBETOL [Suspect]
     Indication: HEPATITIS C
     Dosage: 400 MG PO ; 200 MG PO
     Route: 048
     Dates: start: 20060209, end: 20060514

REACTIONS (11)
  - BLOOD ALBUMIN DECREASED [None]
  - CEREBROVASCULAR DISORDER [None]
  - CONGENITAL CEREBROVASCULAR ANOMALY [None]
  - DIARRHOEA [None]
  - HAEMOGLOBIN DECREASED [None]
  - HEARING IMPAIRED [None]
  - OTITIS MEDIA [None]
  - PLATELET COUNT DECREASED [None]
  - RED BLOOD CELL COUNT DECREASED [None]
  - SUBARACHNOID HAEMORRHAGE [None]
  - WHITE BLOOD CELL COUNT DECREASED [None]
